FAERS Safety Report 6201570-3 (Version None)
Quarter: 2009Q2

REPORT INFORMATION
  Report Type: 
  Country: None (occurrence: None)
  Receive Date: 20090526
  Receipt Date: 20090518
  Transmission Date: 20091009
  Serious: Yes (Other)
  Sender: FDA-Public Use
  Company Number: HK-AVENTIS-200915176GDDC

PATIENT
  Sex: Female

DRUGS (2)
  1. TAXOTERE [Suspect]
     Route: 042
  2. CYCLOPHOSPHAMIDE [Concomitant]
     Route: 042

REACTIONS (1)
  - LEUKOCYTOCLASTIC VASCULITIS [None]
